FAERS Safety Report 5075903-8 (Version None)
Quarter: 2006Q3

REPORT INFORMATION
  Report Type: 
  Country: None (occurrence: None)
  Receive Date: 20060807
  Receipt Date: 20060807
  Transmission Date: 20061208
  Serious: No
  Sender: FDA-Public Use
  Company Number: None

PATIENT
  Age: 44 Year
  Sex: Female
  Weight: 54.4316 kg

DRUGS (1)
  1. PAROXETINE [Suspect]
     Indication: PREMENSTRUAL SYNDROME
     Dosage: 1    DAILY   PO
     Route: 048
     Dates: start: 20060719, end: 20060722

REACTIONS (17)
  - ANOREXIA [None]
  - ANXIETY [None]
  - DIARRHOEA [None]
  - DRUG INEFFECTIVE [None]
  - DRUG WITHDRAWAL SYNDROME [None]
  - FEELING ABNORMAL [None]
  - HEADACHE [None]
  - INFLUENZA LIKE ILLNESS [None]
  - INSOMNIA [None]
  - MALAISE [None]
  - NAUSEA [None]
  - NERVOUSNESS [None]
  - PALPITATIONS [None]
  - PARAESTHESIA [None]
  - RESTLESSNESS [None]
  - THINKING ABNORMAL [None]
  - VOMITING [None]
